FAERS Safety Report 9255753 (Version 1)
Quarter: 2013Q2

REPORT INFORMATION
  Report Type: Spontaneous
  Country: IT (occurrence: IT)
  Receive Date: 20130425
  Receipt Date: 20130425
  Transmission Date: 20140414
  Serious: Yes (Hospitalization)
  Sender: FDA-Public Use
  Company Number: IT-TEVA-399171ISR

PATIENT
  Age: 85 Year
  Sex: Female

DRUGS (3)
  1. ALPRAZOLAM [Suspect]
     Dosage: 5 ML DAILY;
     Route: 048
     Dates: start: 20130412, end: 20130412
  2. TRITTICO [Concomitant]
  3. ATENOLOLO [Concomitant]

REACTIONS (4)
  - Medication error [Recovering/Resolving]
  - Sopor [Recovering/Resolving]
  - Face injury [Recovering/Resolving]
  - Fall [Recovering/Resolving]
